FAERS Safety Report 22590163 (Version 1)
Quarter: 2023Q2

REPORT INFORMATION
  Report Type: Spontaneous
  Country: HR (occurrence: HR)
  Receive Date: 20230612
  Receipt Date: 20230612
  Transmission Date: 20230722
  Serious: Yes (Hospitalization)
  Sender: FDA-Public Use
  Company Number: HR-KI BIOPHARMA, LLC-2023KAM00012

PATIENT
  Age: 45 Year
  Sex: Male

DRUGS (3)
  1. CYTOMEGALOVIRUS IMMUNE GLOBULIN INTRAVENOUS (HUMAN) [Suspect]
     Active Substance: CYTOMEGALOVIRUS IMMUNE GLOBULIN INTRAVENOUS (HUMAN)
     Indication: Cytomegalovirus infection
     Dosage: INITIAL TREATMENT
  2. CYTOMEGALOVIRUS IMMUNE GLOBULIN INTRAVENOUS (HUMAN) [Suspect]
     Active Substance: CYTOMEGALOVIRUS IMMUNE GLOBULIN INTRAVENOUS (HUMAN)
     Dosage: UNK, 3X/WEEK
  3. CYTOMEGALOVIRUS IMMUNE GLOBULIN INTRAVENOUS (HUMAN) [Suspect]
     Active Substance: CYTOMEGALOVIRUS IMMUNE GLOBULIN INTRAVENOUS (HUMAN)
     Dosage: UNK, 2X/WEEK

REACTIONS (1)
  - Drug ineffective for unapproved indication [Recovered/Resolved]
